FAERS Safety Report 20532433 (Version 2)
Quarter: 2022Q1

REPORT INFORMATION
  Report Type: Spontaneous
  Country: DE (occurrence: DE)
  Receive Date: 20220301
  Receipt Date: 20220311
  Transmission Date: 20220423
  Serious: Yes (Other)
  Sender: FDA-Public Use
  Company Number: DE-BEH-2022142672

PATIENT
  Age: 2 Year

DRUGS (1)
  1. HUMAN IMMUNOGLOBULIN G [Suspect]
     Active Substance: HUMAN IMMUNOGLOBULIN G
     Indication: Multisystem inflammatory syndrome in children
     Dosage: }2G/KG BODY WEIGHT
     Route: 042

REACTIONS (7)
  - Haemolysis [Unknown]
  - Haemoglobin decreased [Unknown]
  - Blood lactate dehydrogenase increased [Unknown]
  - Intravascular haemolysis [Unknown]
  - No adverse event [Unknown]
  - Off label use [Unknown]
  - Haemoglobinuria [Unknown]
